FAERS Safety Report 11381104 (Version 4)
Quarter: 2015Q4

REPORT INFORMATION
  Report Type: Report from Study
  Country: US (occurrence: US)
  Receive Date: 20150814
  Receipt Date: 20151015
  Transmission Date: 20160304
  Serious: Yes (Hospitalization, Other)
  Sender: FDA-Public Use
  Company Number: US-SA-2015SA119194

PATIENT
  Age: 43 Year
  Sex: Female
  Weight: 57 kg

DRUGS (10)
  1. TRASTUZUMAB [Suspect]
     Active Substance: TRASTUZUMAB
     Indication: BREAST CANCER
     Dosage: OVER 90 MINUTES ON DAY 1
     Route: 042
     Dates: start: 20150210, end: 20150210
  2. TRASTUZUMAB [Suspect]
     Active Substance: TRASTUZUMAB
     Indication: BREAST CANCER
     Route: 042
     Dates: start: 20150428, end: 20150428
  3. CARBOPLATIN. [Suspect]
     Active Substance: CARBOPLATIN
     Indication: BREAST CANCER
     Dosage: 6MG/ML/MIN TOTAL- 600 MG?30-60 MIN ON DAY 1
     Route: 042
     Dates: start: 20150210, end: 20150210
  4. PERTUZUMAB [Suspect]
     Active Substance: PERTUZUMAB
     Indication: BREAST CANCER
     Route: 042
     Dates: start: 20150428, end: 20150428
  5. DOCETAXEL. [Suspect]
     Active Substance: DOCETAXEL
     Indication: BREAST CANCER
     Route: 042
     Dates: start: 20150428, end: 20150428
  6. TRASTUZUMAB [Suspect]
     Active Substance: TRASTUZUMAB
     Indication: BREAST CANCER
     Dosage: OVER 30-60 MIN ON DAY 1?TOTAL DOSE- 380 MG
     Route: 042
     Dates: start: 20150303, end: 20150303
  7. DOCETAXEL. [Suspect]
     Active Substance: DOCETAXEL
     Indication: BREAST CANCER
     Dosage: TOTAL DOSE 125 MG
     Route: 042
     Dates: start: 20150210, end: 20150210
  8. PERTUZUMAB [Suspect]
     Active Substance: PERTUZUMAB
     Indication: BREAST CANCER
     Dosage: OVER 60 MIN ON DAY 1
     Route: 042
     Dates: start: 20150210, end: 20150210
  9. PERTUZUMAB [Suspect]
     Active Substance: PERTUZUMAB
     Indication: BREAST CANCER
     Dosage: OVER 30-60 MIN    ON DAY 1
     Route: 042
     Dates: start: 20150303, end: 20150303
  10. CARBOPLATIN. [Suspect]
     Active Substance: CARBOPLATIN
     Indication: BREAST CANCER
     Dosage: 6MG/ML/MIN TOTAL- 600 MG
     Route: 042
     Dates: start: 20150428, end: 20150428

REACTIONS (7)
  - Nausea [Recovering/Resolving]
  - Hypokalaemia [Recovering/Resolving]
  - Abdominal pain [Recovered/Resolved with Sequelae]
  - Dehydration [Recovering/Resolving]
  - Diarrhoea [Recovered/Resolved]
  - Hypokalaemia [Recovered/Resolved with Sequelae]
  - Vomiting [Recovering/Resolving]

NARRATIVE: CASE EVENT DATE: 20150330
